FAERS Safety Report 12078958 (Version 3)
Quarter: 2021Q4

REPORT INFORMATION
  Report Type: Report from Study
  Country: CO (occurrence: CO)
  Receive Date: 20160216
  Receipt Date: 20211223
  Transmission Date: 20220303
  Serious: Yes (Hospitalization)
  Sender: FDA-Public Use
  Company Number: PHHY2016CO019224

PATIENT
  Age: 23 Year
  Sex: Female
  Weight: 80 kg

DRUGS (2)
  1. TASIGNA [Suspect]
     Active Substance: NILOTINIB
     Indication: Chronic myeloid leukaemia
     Dosage: 200 MG
     Route: 048
     Dates: start: 2013, end: 2015
  2. TASIGNA [Suspect]
     Active Substance: NILOTINIB
     Dosage: 200 MG, QID
     Route: 048
     Dates: start: 20160212

REACTIONS (4)
  - Laboratory test abnormal [Unknown]
  - Splenitis [Unknown]
  - Vomiting [Unknown]
  - Headache [Unknown]

NARRATIVE: CASE EVENT DATE: 20151201
